FAERS Safety Report 11848100 (Version 3)
Quarter: 2016Q1

REPORT INFORMATION
  Report Type: Spontaneous
  Country: NL (occurrence: NL)
  Receive Date: 20151217
  Receipt Date: 20160208
  Transmission Date: 20160526
  Serious: Yes (Disabling)
  Sender: FDA-Public Use
  Company Number: NL-BRISTOL-MYERS SQUIBB COMPANY-BMS-2015-085591

PATIENT
  Sex: Female

DRUGS (4)
  1. SPRYCEL [Suspect]
     Active Substance: DASATINIB
     Dosage: 100 UNK, UNK
     Route: 048
  2. SPRYCEL [Suspect]
     Active Substance: DASATINIB
     Indication: ACUTE LYMPHOCYTIC LEUKAEMIA
     Dosage: 140 MG, UNK
     Route: 048
     Dates: start: 201001
  3. SPRYCEL [Suspect]
     Active Substance: DASATINIB
     Dosage: 50 MG, UNK
     Route: 048
     Dates: start: 201001
  4. SPRYCEL [Suspect]
     Active Substance: DASATINIB
     Dosage: 70 MG, UNK
     Route: 048
     Dates: start: 201001

REACTIONS (11)
  - Visual impairment [Unknown]
  - Blood test abnormal [Unknown]
  - Fatigue [Unknown]
  - Abdominal discomfort [Unknown]
  - Arthralgia [Unknown]
  - Musculoskeletal stiffness [Unknown]
  - Eye irritation [Unknown]
  - Disturbance in attention [Unknown]
  - Onychoclasis [Unknown]
  - Headache [Unknown]
  - Sleep disorder [Unknown]
